FAERS Safety Report 5120719-7 (Version None)
Quarter: 2006Q4

REPORT INFORMATION
  Report Type: 
  Country: None (occurrence: None)
  Receive Date: 20061004
  Receipt Date: 20060926
  Transmission Date: 20070319
  Serious: Yes (Hospitalization)
  Sender: FDA-Public Use
  Company Number: US-MERCK-0609USA06791

PATIENT
  Age: 45 Year
  Sex: Male

DRUGS (5)
  1. INDOCIN [Suspect]
     Indication: GOUT
     Route: 048
  2. PREDNISONE TAB [Suspect]
     Indication: RENAL TRANSPLANT
     Route: 065
  3. IBUPROFEN [Suspect]
     Route: 065
  4. NAPROXEN SODIUM [Suspect]
     Route: 065
  5. ALKA-SELTZER [Concomitant]
     Route: 065

REACTIONS (8)
  - BLOOD CREATININE INCREASED [None]
  - BLOOD UREA INCREASED [None]
  - GASTRIC ULCER [None]
  - GASTROINTESTINAL FISTULA [None]
  - HAEMATOCRIT DECREASED [None]
  - HAEMOGLOBIN DECREASED [None]
  - NECROSIS [None]
  - THROMBOSIS [None]
